FAERS Safety Report 7709085-8 (Version None)
Quarter: 2011Q3

REPORT INFORMATION
  Report Type: 
  Country: None (occurrence: None)
  Receive Date: 20110825
  Receipt Date: 20110819
  Transmission Date: 20111222
  Serious: Yes (Life-Threatening, Other)
  Sender: FDA-Public Use
  Company Number: AU-ROCHE-789756

PATIENT
  Weight: 105 kg

DRUGS (14)
  1. ATENOLOL [Concomitant]
  2. NAVELBINE [Concomitant]
     Dosage: SINGLE USE 50 MG/5 ML CONCENTRATE FOR INJECTION [1]*4 (VINORELBINE TARTRATE)
  3. ATACAND [Concomitant]
  4. GLICLAZIDE [Concomitant]
     Dosage: MODIFIED RELEASE TABLETS WITH FOOD
  5. OXYCONTIN [Concomitant]
     Dosage: DOSE 1;  FREQUENCY: AT NIGHT (NOCTE)
  6. HERCEPTIN [Suspect]
     Route: 042
     Dates: start: 20110708
  7. MAXOLON [Concomitant]
     Dosage: FREQUENCY: AS REQUIRED.(PRN)
  8. ZOLOFT [Concomitant]
  9. LERCANIDIPINE [Concomitant]
     Dosage: FREQUENCY: AT NIGHT (NOCTE)
  10. DEXAMETHASONE [Concomitant]
  11. PERINDOPRIL ERBUMINE [Concomitant]
  12. NEXIUM [Concomitant]
  13. NAVELBINE [Concomitant]
     Dosage: SINGLE USE 50 MG/5 ML CONCENTRATE FOR INJECTION [1]*4 . AS DIRECTED.
  14. PHYSIOTENS [Concomitant]
     Dosage: FREQUENCY: AT NIGHT.

REACTIONS (2)
  - ANAPHYLACTIC REACTION [None]
  - DISSEMINATED INTRAVASCULAR COAGULATION [None]
